FAERS Safety Report 4860583-4 (Version None)
Quarter: 2005Q4

REPORT INFORMATION
  Report Type: 
  Country: None (occurrence: None)
  Receive Date: 20051219
  Receipt Date: 20051005
  Transmission Date: 20060501
  Serious: Yes (Death, Hospitalization)
  Sender: FDA-Public Use
  Company Number: US-MERCK-0510USA03431

PATIENT
  Age: 84 Year
  Sex: Female

DRUGS (1)
  1. VIOXX [Suspect]
     Indication: PROCEDURAL PAIN
     Route: 048
     Dates: start: 19990801, end: 20001201

REACTIONS (2)
  - ACUTE MYOCARDIAL INFARCTION [None]
  - PERICARDIAL EFFUSION [None]
